FAERS Safety Report 5508553-7 (Version None)
Quarter: 2007Q4

REPORT INFORMATION
  Report Type: 
  Country: None (occurrence: None)
  Receive Date: 20071031
  Receipt Date: 20070712
  Transmission Date: 20080405
  Serious: No
  Sender: FDA-Public Use
  Company Number: 2007PV033132

PATIENT
  Age: 37 Year
  Sex: Female

DRUGS (10)
  1. SYMLIN [Suspect]
     Indication: TYPE 1 DIABETES MELLITUS
     Dosage: 60 MCG;TID;SC ; 36 MCG;TID;SC ; 24 MCG;TID;SC ; 18 MCG;TID;SC
     Route: 058
     Dates: end: 20070501
  2. SYMLIN [Suspect]
     Indication: WEIGHT DECREASED
     Dosage: 60 MCG;TID;SC ; 36 MCG;TID;SC ; 24 MCG;TID;SC ; 18 MCG;TID;SC
     Route: 058
     Dates: end: 20070501
  3. SYMLIN [Suspect]
     Indication: TYPE 1 DIABETES MELLITUS
     Dosage: 60 MCG;TID;SC ; 36 MCG;TID;SC ; 24 MCG;TID;SC ; 18 MCG;TID;SC
     Route: 058
  4. SYMLIN [Suspect]
     Indication: WEIGHT DECREASED
     Dosage: 60 MCG;TID;SC ; 36 MCG;TID;SC ; 24 MCG;TID;SC ; 18 MCG;TID;SC
     Route: 058
  5. SYMLIN [Suspect]
     Indication: TYPE 1 DIABETES MELLITUS
     Dosage: 60 MCG;TID;SC ; 36 MCG;TID;SC ; 24 MCG;TID;SC ; 18 MCG;TID;SC
     Route: 058
  6. SYMLIN [Suspect]
     Indication: WEIGHT DECREASED
     Dosage: 60 MCG;TID;SC ; 36 MCG;TID;SC ; 24 MCG;TID;SC ; 18 MCG;TID;SC
     Route: 058
  7. SYMLIN [Suspect]
     Indication: TYPE 1 DIABETES MELLITUS
     Dosage: 60 MCG;TID;SC ; 36 MCG;TID;SC ; 24 MCG;TID;SC ; 18 MCG;TID;SC
     Route: 058
     Dates: start: 20061101
  8. SYMLIN [Suspect]
     Indication: WEIGHT DECREASED
     Dosage: 60 MCG;TID;SC ; 36 MCG;TID;SC ; 24 MCG;TID;SC ; 18 MCG;TID;SC
     Route: 058
     Dates: start: 20061101
  9. HUMALOG [Concomitant]
  10. LANTUS [Concomitant]

REACTIONS (1)
  - INJECTION SITE PAIN [None]
